FAERS Safety Report 9455664 (Version 2)
Quarter: 2013Q3

REPORT INFORMATION
  Report Type: Spontaneous
  Country: JP (occurrence: JP)
  Receive Date: 20130813
  Receipt Date: 20130823
  Transmission Date: 20140515
  Serious: Yes (Hospitalization)
  Sender: FDA-Public Use
  Company Number: JP-NOVOPROD-384647

PATIENT
  Age: 15 Year
  Sex: Female
  Weight: 41 kg

DRUGS (4)
  1. NORDITROPIN FLEXPROCHU 6.7 MG/ML [Suspect]
     Indication: GROWTH HORMONE DEFICIENCY
     Dosage: 1.0-1.5MG X 6 TIMES / WEEK
     Route: 058
     Dates: start: 20070802, end: 20130326
  2. THYRADIN S [Concomitant]
     Indication: SECONDARY HYPOTHYROIDISM
     Dosage: 50 ?G, QD
     Route: 048
     Dates: start: 20080107, end: 20130326
  3. SINGULAIR [Concomitant]
     Indication: ASTHMA
     Dosage: 10 MG, QD
     Route: 048
  4. ALLEGRA [Concomitant]
     Indication: ASTHMA
     Dosage: 60 MG, QD
     Route: 048
     Dates: start: 20111226

REACTIONS (1)
  - Type 1 diabetes mellitus [Not Recovered/Not Resolved]
